FAERS Safety Report 6140942-2 (Version None)
Quarter: 2009Q2

REPORT INFORMATION
  Report Type: 
  Country: None (occurrence: None)
  Receive Date: 20090402
  Receipt Date: 20080806
  Transmission Date: 20091009
  Serious: No
  Sender: FDA-Public Use
  Company Number: US-KINGPHARMUSA00001-K200800937

PATIENT
  Sex: Female

DRUGS (14)
  1. SKELAXIN [Suspect]
     Indication: FIBROMYALGIA
     Dosage: 800 MG, TID
     Route: 048
     Dates: start: 20080711
  2. SKELAXIN [Suspect]
     Indication: ARTHRITIS
  3. HUMALOG [Concomitant]
  4. LEVEMIR [Concomitant]
     Dosage: 20 U, UNK
  5. DIOVAN                             /01319601/ [Concomitant]
     Indication: HYPERTENSION
  6. SYNTHROID [Concomitant]
     Indication: THYROID DISORDER
  7. ATIVAN [Concomitant]
     Indication: RESTLESSNESS
  8. ZOLOFT [Concomitant]
     Indication: DEPRESSION
  9. PREMARIN [Concomitant]
  10. PREVACID [Concomitant]
  11. TRIENTINE DIHYDROCHLORIDE [Concomitant]
  12. LORTAB [Concomitant]
     Dosage: UNK, PRN
  13. AUGMENTIN '125' [Concomitant]
     Dosage: UNK, PRN
  14. ATROVENT [Concomitant]
     Indication: BRONCHIECTASIS
     Dosage: UNK, UNK

REACTIONS (2)
  - FEELING ABNORMAL [None]
  - NAUSEA [None]
